FAERS Safety Report 6061556-9 (Version None)
Quarter: 2009Q1

REPORT INFORMATION
  Report Type: 
  Country: None (occurrence: None)
  Receive Date: 20090202
  Receipt Date: 20090121
  Transmission Date: 20090719
  Serious: Yes (Hospitalization)
  Sender: FDA-Public Use
  Company Number: JP-ROCHE-610895

PATIENT
  Age: 12 Year
  Sex: Female

DRUGS (1)
  1. TAMIFLU [Suspect]
     Indication: INFLUENZA
     Dosage: FROMULATION REPORTED AS: DRY SYRUP.
     Route: 048
     Dates: start: 20090119, end: 20090121

REACTIONS (1)
  - TONIC CONVULSION [None]
